FAERS Safety Report 19847450 (Version 1)
Quarter: 2021Q3

REPORT INFORMATION
  Report Type: Spontaneous
  Country: US (occurrence: US)
  Receive Date: 20210917
  Receipt Date: 20210917
  Transmission Date: 20211014
  Serious: Yes (Other)
  Sender: FDA-Public Use
  Company Number: US-GLAXOSMITHKLINE-US2021AMR194396

PATIENT

DRUGS (1)
  1. VENTOLIN HFA [Suspect]
     Active Substance: ALBUTEROL SULFATE
     Indication: PRODUCT USED FOR UNKNOWN INDICATION
     Dosage: UNK
     Route: 055

REACTIONS (7)
  - Arthritis [Unknown]
  - Muscular weakness [Unknown]
  - Tremor [Unknown]
  - Chronic obstructive pulmonary disease [Unknown]
  - Wrong technique in device usage process [Unknown]
  - Panic attack [Unknown]
  - Lung neoplasm malignant [Unknown]
